FAERS Safety Report 12117775 (Version 2)
Quarter: 2016Q1

REPORT INFORMATION
  Report Type: Spontaneous
  Country: US (occurrence: US)
  Receive Date: 20160226
  Receipt Date: 20160310
  Transmission Date: 20160526
  Serious: Yes (Other)
  Sender: FDA-Public Use
  Company Number: US-BEH-2016059146

PATIENT
  Sex: Male
  Weight: 51 kg

DRUGS (14)
  1. CLOBETASOL [Concomitant]
     Active Substance: CLOBETASOL
  2. AMANTADINE [Concomitant]
     Active Substance: AMANTADINE
  3. NASONEX [Concomitant]
     Active Substance: MOMETASONE FUROATE
  4. EPIPEN [Concomitant]
     Active Substance: EPINEPHRINE
  5. OMEPRAZOLE. [Concomitant]
     Active Substance: OMEPRAZOLE
  6. METHYLPHENIDATE. [Concomitant]
     Active Substance: METHYLPHENIDATE
  7. PROTOPIC [Concomitant]
     Active Substance: TACROLIMUS
  8. HIZENTRA [Suspect]
     Active Substance: HUMAN IMMUNOGLOBULIN G
     Indication: IMMUNODEFICIENCY
     Route: 058
     Dates: start: 20121129
  9. HUMALOG [Concomitant]
     Active Substance: INSULIN LISPRO
  10. COMPOUND W [Concomitant]
     Active Substance: SALICYLIC ACID
  11. PROAIR HFA [Concomitant]
     Active Substance: ALBUTEROL SULFATE
  12. DIPHENHYDRAMINE. [Concomitant]
     Active Substance: DIPHENHYDRAMINE
  13. ENBREL [Concomitant]
     Active Substance: ETANERCEPT
  14. RANITIDINE [Concomitant]
     Active Substance: RANITIDINE\RANITIDINE HYDROCHLORIDE

REACTIONS (2)
  - Hepatic enzyme increased [Unknown]
  - Granulomatous liver disease [Unknown]
